FAERS Safety Report 9664469 (Version 2)
Quarter: 2013Q4

REPORT INFORMATION
  Report Type: Spontaneous
  Country: GB (occurrence: GB)
  Receive Date: 20131101
  Receipt Date: 20131111
  Transmission Date: 20140711
  Serious: Yes (Hospitalization, Other)
  Sender: FDA-Public Use
  Company Number: GB-ABBVIE-13P-167-1162576-00

PATIENT
  Sex: Female

DRUGS (2)
  1. HUMIRA [Suspect]
     Indication: CROHN^S DISEASE
  2. HUMIRA [Suspect]

REACTIONS (3)
  - Dizziness [Recovered/Resolved]
  - Fear of injection [Unknown]
  - Injury [Unknown]
